FAERS Safety Report 7410525-2 (Version None)
Quarter: 2011Q2

REPORT INFORMATION
  Report Type: 
  Country: None (occurrence: None)
  Receive Date: 20110413
  Receipt Date: 20110404
  Transmission Date: 20111010
  Serious: No
  Sender: FDA-Public Use
  Company Number: US-BIOGENIDEC-2011BI012730

PATIENT
  Age: 52 Year
  Sex: Female

DRUGS (2)
  1. BENADRYL [Concomitant]
     Indication: PRODUCT USED FOR UNKNOWN INDICATION
  2. TYSABRI [Suspect]
     Indication: MULTIPLE SCLEROSIS
     Route: 042
     Dates: start: 20101227

REACTIONS (5)
  - TREMOR [None]
  - HYPOAESTHESIA [None]
  - CHILLS [None]
  - BLOOD PRESSURE FLUCTUATION [None]
  - MOBILITY DECREASED [None]
